FAERS Safety Report 11995633 (Version 1)
Quarter: 2016Q1

REPORT INFORMATION
  Report Type: Report from Study
  Country: US (occurrence: US)
  Receive Date: 20160203
  Receipt Date: 20160203
  Transmission Date: 20160526
  Serious: Yes (Other)
  Sender: FDA-Public Use
  Company Number: US-ASTRAZENECA-2014SE26084

PATIENT
  Age: 55 Year
  Sex: Female
  Weight: 84.4 kg

DRUGS (27)
  1. NEXIUM [Suspect]
     Active Substance: ESOMEPRAZOLE MAGNESIUM
     Indication: SCLERODERMA
     Route: 048
     Dates: start: 2001, end: 20141224
  2. NEXIUM [Suspect]
     Active Substance: ESOMEPRAZOLE MAGNESIUM
     Indication: GASTROOESOPHAGEAL REFLUX DISEASE
     Dosage: ESOMEPRAZOLE MAGNESIUM, 40 MG TWO TIMES A DAY
     Route: 048
     Dates: start: 20151225
  3. CLARITIN [Concomitant]
     Active Substance: LORATADINE
     Indication: MULTIPLE ALLERGIES
     Dosage: GENERIC, 10 MG DAILY
     Route: 048
     Dates: start: 201407
  4. MULTIVITAMIN [Concomitant]
     Active Substance: VITAMINS
     Indication: PRODUCT USED FOR UNKNOWN INDICATION
     Dosage: UNKNOWN DAILY
     Route: 048
     Dates: start: 1996
  5. TRAMADOL. [Concomitant]
     Active Substance: TRAMADOL
     Indication: BACK PAIN
     Route: 048
     Dates: start: 2014
  6. IRON [Concomitant]
     Active Substance: IRON
     Indication: BLOOD IRON ABNORMAL
     Route: 048
     Dates: start: 2008
  7. NEXIUM [Suspect]
     Active Substance: ESOMEPRAZOLE MAGNESIUM
     Indication: GASTROOESOPHAGEAL REFLUX DISEASE
     Route: 048
     Dates: start: 2001, end: 20141224
  8. SYMBICORT [Suspect]
     Active Substance: BUDESONIDE\FORMOTEROL FUMARATE DIHYDRATE
     Indication: CHRONIC OBSTRUCTIVE PULMONARY DISEASE
     Dosage: 80/4.5 MCG BID
     Route: 055
     Dates: start: 2015
  9. IRON [Concomitant]
     Active Substance: IRON
     Indication: BLOOD IRON ABNORMAL
     Dosage: UNKNOWN, AS REQUIRED
     Route: 048
     Dates: start: 2006
  10. OXYCODONE [Concomitant]
     Active Substance: OXYCODONE
     Indication: PAIN
     Route: 048
     Dates: start: 2015
  11. TUDORZA PRESSAIR [Concomitant]
     Active Substance: ACLIDINIUM BROMIDE
     Indication: CHRONIC OBSTRUCTIVE PULMONARY DISEASE
     Dosage: 400MCG 2 PUFF DAILY
     Route: 048
     Dates: start: 201312, end: 201402
  12. NEXIUM [Suspect]
     Active Substance: ESOMEPRAZOLE MAGNESIUM
     Indication: SCLERODERMA
     Route: 048
     Dates: start: 2004, end: 2007
  13. NEXIUM [Suspect]
     Active Substance: ESOMEPRAZOLE MAGNESIUM
     Indication: SCLERODERMA
     Route: 048
     Dates: start: 2002, end: 2004
  14. DIPYRIDAMOLE. [Concomitant]
     Active Substance: DIPYRIDAMOLE
     Indication: POOR PERIPHERAL CIRCULATION
     Dosage: 50MG TID PRN IN WINTER
     Route: 048
     Dates: start: 2011
  15. AMLODIPINE [Concomitant]
     Active Substance: AMLODIPINE BESYLATE
     Route: 048
     Dates: start: 201509
  16. VITAMIN D3 [Concomitant]
     Active Substance: CHOLECALCIFEROL
     Indication: BONE DISORDER
     Route: 048
     Dates: start: 2013
  17. TYLENOL [Concomitant]
     Active Substance: ACETAMINOPHEN
     Indication: PAIN
     Route: 048
     Dates: start: 2014
  18. NEXIUM [Suspect]
     Active Substance: ESOMEPRAZOLE MAGNESIUM
     Indication: GASTROOESOPHAGEAL REFLUX DISEASE
     Route: 048
     Dates: start: 2002, end: 2004
  19. NEXIUM [Suspect]
     Active Substance: ESOMEPRAZOLE MAGNESIUM
     Indication: SCLERODERMA
     Dosage: ESOMEPRAZOLE MAGNESIUM, 40 MG TWO TIMES A DAY
     Route: 048
     Dates: start: 20151225
  20. CALCIUM CITRATE PLUSD3 [Concomitant]
     Indication: MINERAL SUPPLEMENTATION
     Dosage: 250 200IU DAILY
     Route: 048
     Dates: start: 2008
  21. COLCHICINE. [Concomitant]
     Active Substance: COLCHICINE
     Indication: POOR PERIPHERAL CIRCULATION
     Route: 048
     Dates: start: 2014
  22. COLCHICINE. [Concomitant]
     Active Substance: COLCHICINE
     Indication: CALCINOSIS
     Route: 048
     Dates: start: 2014
  23. NEXIUM [Suspect]
     Active Substance: ESOMEPRAZOLE MAGNESIUM
     Indication: GASTROOESOPHAGEAL REFLUX DISEASE
     Route: 048
     Dates: start: 2004, end: 2007
  24. IRON [Concomitant]
     Active Substance: IRON
     Indication: FATIGUE
     Dosage: UNKNOWN, AS REQUIRED
     Route: 048
     Dates: start: 2006
  25. IRON [Concomitant]
     Active Substance: IRON
     Indication: FATIGUE
     Route: 048
     Dates: start: 2008
  26. FUROSEMIDE. [Concomitant]
     Active Substance: FUROSEMIDE
     Indication: FLUID RETENTION
     Route: 048
     Dates: start: 2015
  27. METHOCARBAMOL. [Concomitant]
     Active Substance: METHOCARBAMOL
     Indication: MUSCLE DISORDER
     Route: 048
     Dates: start: 201507

REACTIONS (15)
  - Gastrointestinal haemorrhage [Unknown]
  - Gastrooesophageal reflux disease [Unknown]
  - Fluid intake reduced [Unknown]
  - Hypophagia [Unknown]
  - Fatigue [Unknown]
  - Body height decreased [Unknown]
  - Off label use [Unknown]
  - Spinal column stenosis [Unknown]
  - Drug ineffective [Unknown]
  - Diverticulum [Unknown]
  - Blood iron decreased [Unknown]
  - Drug dose omission [Unknown]
  - Hiatus hernia [Unknown]
  - Vomiting [Unknown]
  - Vomiting [Unknown]

NARRATIVE: CASE EVENT DATE: 2004
